FAERS Safety Report 4549477-1 (Version None)
Quarter: 2005Q1

REPORT INFORMATION
  Report Type: 
  Country: None (occurrence: None)
  Receive Date: 20050110
  Receipt Date: 20050110
  Transmission Date: 20050727
  Serious: Yes (Other)
  Sender: FDA-Public Use
  Company Number: None

PATIENT

DRUGS (1)
  1. TIMOLOL GFS 0.5% FALCON [Suspect]
     Indication: GLAUCOMA
     Dosage: ONE DROP EVERY DAY OPHTHALMIC
     Route: 047

REACTIONS (1)
  - PHARMACEUTICAL PRODUCT COMPLAINT [None]
